FAERS Safety Report 26101250 (Version 1)
Quarter: 2025Q4

REPORT INFORMATION
  Report Type: Spontaneous
  Country: EU (occurrence: EU)
  Receive Date: 20251128
  Receipt Date: 20251128
  Transmission Date: 20260118
  Serious: Yes (Hospitalization, Other)
  Sender: ROCHE
  Company Number: EU-ROCHE-10000440583

PATIENT
  Age: 59 Year
  Sex: Female

DRUGS (9)
  1. BEVACIZUMAB [Suspect]
     Active Substance: BEVACIZUMAB
     Indication: Colorectal adenocarcinoma
     Route: 065
     Dates: start: 202408, end: 202412
  2. FLUOROURACIL\IRINOTECAN\LEUCOVORIN [Suspect]
     Active Substance: FLUOROURACIL\IRINOTECAN\LEUCOVORIN
     Indication: Colorectal adenocarcinoma
     Route: 065
     Dates: start: 202408, end: 202412
  3. XELODA [Concomitant]
     Active Substance: CAPECITABINE
     Indication: Colorectal adenocarcinoma
  4. XARELTO [Concomitant]
     Active Substance: RIVAROXABAN
  5. PEGFILGRASTIM [Concomitant]
     Active Substance: PEGFILGRASTIM
  6. SUPPORTAN [Concomitant]
     Indication: Weight decreased
  7. SUPPORTAN [Concomitant]
     Indication: Sarcopenia
  8. PRONUTRIN [Concomitant]
     Indication: Weight decreased
  9. PRONUTRIN [Concomitant]
     Indication: Sarcopenia

REACTIONS (9)
  - Disease progression [Unknown]
  - Deep vein thrombosis [Unknown]
  - Postoperative abscess [Unknown]
  - Urinary tract infection [Unknown]
  - Weight decreased [Unknown]
  - Sarcopenia [Unknown]
  - Lymphadenopathy [Unknown]
  - Renal cyst [Unknown]
  - Pulmonary embolism [Unknown]

NARRATIVE: CASE EVENT DATE: 20240901
